FAERS Safety Report 8307306-4 (Version None)
Quarter: 2012Q2

REPORT INFORMATION
  Report Type: 
  Country: None (occurrence: None)
  Receive Date: 20120420
  Receipt Date: 20120411
  Transmission Date: 20120825
  Serious: Yes (Other)
  Sender: FDA-Public Use
  Company Number: 1231456

PATIENT
  Age: 48 Year
  Sex: Female
  Weight: 31.7518 kg

DRUGS (11)
  1. RANITIDINE [Suspect]
     Indication: PRODUCT USED FOR UNKNOWN INDICATION
     Dosage: 50 MG MILLIGRAM(S), INTRAVENOUS (NOT OTHERWISE SPECIFIED)
     Route: 042
  2. (BIOTENE /00203502/) [Concomitant]
  3. DEXAMETHASONE [Suspect]
     Indication: PRODUCT USED FOR UNKNOWN INDICATION
     Dosage: 20 MG MILLIGRAM(S), INTRAVENOUS (NOT OTHERWISE SPECIFIED)
     Route: 042
  4. PACLITAXEL [Suspect]
     Indication: BREAST CANCER
     Dosage: 315 MG MILLIGRAM9S), 2 WEEK, INTRAVENOUS (NOT OTHERWISE SPECIFIED), 300 MG MILLIGRAM(S), INTRAVENOUS
     Route: 042
     Dates: start: 20110621, end: 20110705
  5. PACLITAXEL [Suspect]
     Indication: BREAST CANCER
     Dosage: 315 MG MILLIGRAM9S), 2 WEEK, INTRAVENOUS (NOT OTHERWISE SPECIFIED), 300 MG MILLIGRAM(S), INTRAVENOUS
     Route: 042
     Dates: start: 20110524, end: 20110607
  6. (DOMPERIDONE) [Suspect]
     Indication: PRODUCT USED FOR UNKNOWN INDICATION
     Dosage: 20 MG MILLIGRAM9S), 1 DAY, ORAL, 20 MG, AS NEEDED, ORAL
     Route: 048
  7. GRANISETRON [Suspect]
     Indication: PRODUCT USED FOR UNKNOWN INDICATION
     Dosage: 1 MG MILLIGRAM(S), 1 DAY, ORAL
  8. (PEGFILGRASTIM) [Suspect]
     Indication: PRODUCT USED FOR UNKNOWN INDICATION
     Dosage: 6 MG MILLIGRAM(S), SUBCUTANEOUS
     Route: 058
  9. DEXAMETHASONE [Suspect]
     Indication: PRODUCT USED FOR UNKNOWN INDICATION
     Dosage: 4 MG MILLIGRAM(S), 1 DAY, ORAL
     Route: 048
  10. (DOCUSATE) [Concomitant]
  11. CHLORPHENIRAMINE MALEATE [Suspect]
     Indication: PRODUCT USED FOR UNKNOWN INDICATION
     Dosage: 10 MG MILLIGRAM(S), INTRAVENOUS (NOT OTHERWISE SPECIFIED)
     Route: 042

REACTIONS (4)
  - DYSPNOEA [None]
  - FATIGUE [None]
  - CHEST DISCOMFORT [None]
  - CHEST PAIN [None]
